FAERS Safety Report 9729813 (Version 2)
Quarter: 2013Q4

REPORT INFORMATION
  Report Type: Spontaneous
  Country: US (occurrence: US)
  Receive Date: 20131204
  Receipt Date: 20131204
  Transmission Date: 20140711
  Serious: No
  Sender: FDA-Public Use
  Company Number: US-GILEAD-2009-0022588

PATIENT
  Sex: Female
  Weight: 79.38 kg

DRUGS (16)
  1. LETAIRIS [Suspect]
     Indication: PULMONARY ARTERIAL HYPERTENSION
     Route: 048
     Dates: start: 20090522, end: 200906
  2. REVATIO [Concomitant]
  3. COUMADIN [Concomitant]
  4. ASPIRIN [Concomitant]
  5. FONDAPARINUX [Concomitant]
  6. LASIX [Concomitant]
  7. XANAX [Concomitant]
  8. LEVOTHYROXINE [Concomitant]
  9. BACLOFEN [Concomitant]
  10. GABAPENTIN [Concomitant]
  11. LYRICA [Concomitant]
  12. VITAMIN E [Concomitant]
  13. SYLENIUM [Concomitant]
  14. VEGAN OMEGA [Concomitant]
  15. CHLOROPHIL [Concomitant]
  16. AZELASTINE [Concomitant]

REACTIONS (5)
  - Joint swelling [Unknown]
  - Abdominal discomfort [Unknown]
  - Drug ineffective [Unknown]
  - Oedema [Unknown]
  - Dyspnoea [Unknown]
